FAERS Safety Report 7587415-8 (Version None)
Quarter: 2011Q3

REPORT INFORMATION
  Report Type: 
  Country: None (occurrence: None)
  Receive Date: 20110704
  Receipt Date: 20110610
  Transmission Date: 20111222
  Serious: No
  Sender: FDA-Public Use
  Company Number: US-BIOGENIDEC-2011BI021674

PATIENT
  Age: 60 Year
  Sex: Female

DRUGS (4)
  1. TYSABRI [Suspect]
     Indication: MULTIPLE SCLEROSIS
     Route: 042
     Dates: start: 20110112
  2. TYSABRI [Suspect]
     Route: 042
     Dates: start: 20081001, end: 20100629
  3. TYSABRI [Suspect]
     Route: 042
  4. TYSABRI [Suspect]
     Route: 042
     Dates: start: 20061127, end: 20080807

REACTIONS (2)
  - NERVOUS SYSTEM DISORDER [None]
  - MULTIPLE SCLEROSIS RELAPSE [None]
